FAERS Safety Report 23110908 (Version 1)
Quarter: 2023Q4

REPORT INFORMATION
  Report Type: Report from Study
  Country: ES (occurrence: ES)
  Receive Date: 20231026
  Receipt Date: 20231026
  Transmission Date: 20240109
  Serious: Yes (Other)
  Sender: FDA-Public Use
  Company Number: ES-JAZZ PHARMACEUTICALS-2021-ES-018357

PATIENT
  Age: 10 Year

DRUGS (2)
  1. DEFITELIO [Suspect]
     Active Substance: DEFIBROTIDE SODIUM
     Indication: Prophylaxis
     Dosage: UNKNOWN DOSE
     Dates: start: 20210910
  2. DEFITELIO [Suspect]
     Active Substance: DEFIBROTIDE SODIUM
     Indication: Venoocclusive liver disease

REACTIONS (2)
  - Venoocclusive liver disease [Unknown]
  - Off label use [Unknown]
